FAERS Safety Report 19238139 (Version 1)
Quarter: 2021Q2

REPORT INFORMATION
  Report Type: Spontaneous
  Country: US (occurrence: US)
  Receive Date: 20210510
  Receipt Date: 20210510
  Transmission Date: 20210717
  Serious: Yes (Other)
  Sender: FDA-Public Use
  Company Number: US-PURDUE PHARMA-USA-2021-0255076

PATIENT
  Age: 87 Year
  Sex: Male

DRUGS (1)
  1. OXYCODONE HYDROCHLORIDE (SIMILAR TO NDA 22?272) [Suspect]
     Active Substance: OXYCODONE HYDROCHLORIDE
     Indication: PAIN
     Route: 048

REACTIONS (5)
  - Delirium [Unknown]
  - Irritability [Unknown]
  - Pain [Unknown]
  - Drug use disorder [Unknown]
  - Drug withdrawal syndrome [Unknown]
